FAERS Safety Report 8302017-3 (Version None)
Quarter: 2012Q2

REPORT INFORMATION
  Report Type: 
  Country: None (occurrence: None)
  Receive Date: 20120420
  Receipt Date: 20120411
  Transmission Date: 20120825
  Serious: Yes (Hospitalization)
  Sender: FDA-Public Use
  Company Number: UA-ASTRAZENECA-2012SE22170

PATIENT
  Age: 38 Year
  Sex: Female

DRUGS (10)
  1. PROGESTERONE [Interacting]
     Dates: start: 20090101
  2. LISINOPRIL [Suspect]
     Indication: HYPERTENSION
     Route: 048
  3. METOPROLOL TARTRATE [Interacting]
  4. PROGESTERONE [Interacting]
     Dates: start: 20090101
  5. CURANTYL [Concomitant]
     Indication: NEPHRITIS
  6. ASPIGREL [Concomitant]
  7. DIVIGEL [Interacting]
     Dates: start: 20090101
  8. PROGESTERONE [Interacting]
     Dates: start: 20090101
  9. METHYLDOPA [Interacting]
     Indication: HYPERTENSION
  10. PREGNENOLDIONE [Concomitant]
     Dosage: 2 ML EVERY THIRD DAY

REACTIONS (2)
  - SYSTEMIC LUPUS ERYTHEMATOSUS [None]
  - DRUG INTERACTION [None]
